FAERS Safety Report 9508508 (Version 1)
Quarter: 2013Q1

REPORT INFORMATION
  Report Type: Spontaneous
  Country: US (occurrence: None)
  Receive Date: 20130305
  Receipt Date: 20130305
  Transmission Date: 20140127
  Serious: Yes (Other)
  Sender: FDA-Public Use
  Company Number: 163-21880-12112453

PATIENT
  Age: 72 Year
  Sex: Female
  Weight: 58.97 kg

DRUGS (7)
  1. REVLIMID (LENALIDOMIDE) (CAPSULES) [Suspect]
     Indication: PLASMA CELL MYELOMA
     Route: 048
     Dates: start: 200811
  2. CALCIUM + VITAMIN D (LEKOVIT CA) [Concomitant]
  3. FISH OIL [Concomitant]
  4. ZIAC (BISELECT) [Concomitant]
  5. NEXIUM [Concomitant]
  6. POTASSIUM [Concomitant]
  7. DECADRON (DEXAMETHASONE) [Concomitant]

REACTIONS (5)
  - Weight increased [None]
  - Onychoclasis [None]
  - Nail growth abnormal [None]
  - Myalgia [None]
  - Arthralgia [None]
